FAERS Safety Report 9554027 (Version 2)
Quarter: 2013Q3

REPORT INFORMATION
  Report Type: Spontaneous
  Country: JP (occurrence: JP)
  Receive Date: 20130925
  Receipt Date: 20130925
  Transmission Date: 20140515
  Serious: Yes (Hospitalization)
  Sender: FDA-Public Use
  Company Number: JP-TAKEDA-TCI2013A04877

PATIENT
  Age: 61 Year
  Sex: Female

DRUGS (8)
  1. LANSAP 400 [Suspect]
     Indication: HELICOBACTER INFECTION
     Route: 048
     Dates: start: 20130726, end: 20130801
  2. LANSAP 400 [Suspect]
     Indication: HELICOBACTER INFECTION
  3. TAKEPRON OD TABLETS 30 [Suspect]
     Route: 048
     Dates: start: 20130802, end: 20130803
  4. SAXIZON [Suspect]
     Route: 041
     Dates: start: 20130805
  5. PREDNISOLONE POWDER 1% [Suspect]
     Route: 048
     Dates: start: 20130805, end: 20130811
  6. PREDNISOLONE POWDER 1% [Suspect]
     Route: 048
     Dates: start: 20130812, end: 20130818
  7. PREDNISOLONE POWDER 1% [Suspect]
     Route: 048
     Dates: start: 20130819, end: 20130826
  8. PREDNISOLONE POWDER 1% [Suspect]
     Route: 048
     Dates: start: 20130827

REACTIONS (3)
  - Drug eruption [Recovering/Resolving]
  - Liver disorder [Recovering/Resolving]
  - Generalised oedema [Recovering/Resolving]
